FAERS Safety Report 7401616-0 (Version None)
Quarter: 2011Q2

REPORT INFORMATION
  Report Type: 
  Country: None (occurrence: None)
  Receive Date: 20110408
  Receipt Date: 20110331
  Transmission Date: 20111010
  Serious: No
  Sender: FDA-Public Use
  Company Number: US-BIOGENIDEC-2011BI012331

PATIENT
  Age: 50 Year
  Sex: Female

DRUGS (1)
  1. TYSABRI [Suspect]
     Indication: MULTIPLE SCLEROSIS
     Route: 042
     Dates: start: 20101028

REACTIONS (6)
  - BACK PAIN [None]
  - PAIN IN EXTREMITY [None]
  - ASTHENIA [None]
  - MENORRHAGIA [None]
  - DYSMENORRHOEA [None]
  - FATIGUE [None]
